FAERS Safety Report 5498101-2 (Version None)
Quarter: 2007Q4

REPORT INFORMATION
  Report Type: 
  Country: None (occurrence: None)
  Receive Date: 20071025
  Receipt Date: 20071021
  Transmission Date: 20080405
  Serious: Yes (Death)
  Sender: FDA-Public Use
  Company Number: IT-GENENTECH-250149

PATIENT

DRUGS (11)
  1. RITUXAN [Suspect]
     Indication: B-CELL LYMPHOMA
     Dosage: 375 MG/M2, UNK
  2. DOXORUBICIN HCL [Suspect]
     Indication: B-CELL LYMPHOMA
     Dosage: 50 MG/M2, UNK
  3. VINCRISTINE [Suspect]
     Indication: B-CELL LYMPHOMA
  4. PREDNISONE [Suspect]
     Indication: B-CELL LYMPHOMA
  5. CYCLOPHOSPHAMIDE [Suspect]
     Indication: B-CELL LYMPHOMA
     Dosage: 7 G/M2, UNK
  6. CYTARABINE [Suspect]
     Indication: B-CELL LYMPHOMA
     Dosage: 2 G/M2, UNK
  7. ETOPOSIDE [Suspect]
     Indication: B-CELL LYMPHOMA
     Dosage: 2.4 G/M2, UNK
  8. CISPLATIN [Suspect]
     Indication: B-CELL LYMPHOMA
     Dosage: 100 MG/M2, UNK
  9. MITOMYCIN [Suspect]
     Indication: B-CELL LYMPHOMA
     Dosage: 60 MG/M2, UNK
  10. MELPHALAN [Suspect]
     Indication: B-CELL LYMPHOMA
     Dosage: 180 MG/M2, UNK
  11. GCSF OR GMCSF [Concomitant]
     Indication: DRUG USE FOR UNKNOWN INDICATION

REACTIONS (1)
  - MYELODYSPLASTIC SYNDROME [None]
